FAERS Safety Report 18515958 (Version 1)
Quarter: 2020Q4

REPORT INFORMATION
  Report Type: Spontaneous
  Country: FR (occurrence: FR)
  Receive Date: 20201118
  Receipt Date: 20201118
  Transmission Date: 20210114
  Serious: Yes (Hospitalization)
  Sender: FDA-Public Use
  Company Number: FR-ACCORD-208461

PATIENT
  Age: 26 Year
  Sex: Male
  Weight: 88 kg

DRUGS (7)
  1. AMITRIPTYLINE [Suspect]
     Active Substance: AMITRIPTYLINE
     Route: 065
     Dates: start: 201804, end: 201804
  2. TRAMADOL BASE [Suspect]
     Active Substance: TRAMADOL
     Route: 065
     Dates: start: 201804, end: 201804
  3. CITALOPRAM [Suspect]
     Active Substance: CITALOPRAM HYDROBROMIDE
     Route: 065
     Dates: start: 201804, end: 201804
  4. OXAZEPAM. [Suspect]
     Active Substance: OXAZEPAM
     Dosage: INCONNUE
     Route: 065
     Dates: start: 201804, end: 201804
  5. AMFETAMINE [Suspect]
     Active Substance: AMPHETAMINE
     Dosage: INCONNUE
     Route: 065
     Dates: start: 201804
  6. METHADONE [Suspect]
     Active Substance: METHADONE HYDROCHLORIDE
     Route: 048
     Dates: start: 20180422, end: 20180422
  7. NORDAZEPAM [Suspect]
     Active Substance: NORDAZEPAM
     Dosage: INCONNUE
     Route: 065
     Dates: start: 201804, end: 201804

REACTIONS (3)
  - Acute kidney injury [Recovered/Resolved]
  - Rhabdomyolysis [Recovered/Resolved]
  - Poisoning deliberate [Recovered/Resolved]

NARRATIVE: CASE EVENT DATE: 20180422
